FAERS Safety Report 10445192 (Version 1)
Quarter: 2014Q3

REPORT INFORMATION
  Report Type: Spontaneous
  Country: US (occurrence: US)
  Receive Date: 20140910
  Receipt Date: 20140910
  Transmission Date: 20150326
  Serious: No
  Sender: FDA-Public Use
  Company Number: US-ASTRAZENECA-2014SE65963

PATIENT
  Age: 70 Year
  Sex: Female

DRUGS (3)
  1. UNSPECIFIED [Concomitant]
     Active Substance: UNSPECIFIED INGREDIENT
     Indication: HYPERTENSION
     Dosage: UNKNOWN UNK
  2. INSULIN-UNSPECIFIED [Concomitant]
     Dosage: UNKNOWN UNK
  3. NEXIUM [Suspect]
     Active Substance: ESOMEPRAZOLE MAGNESIUM
     Route: 048
     Dates: start: 20140828

REACTIONS (3)
  - Chest discomfort [Unknown]
  - Nausea [Unknown]
  - Eructation [Unknown]

NARRATIVE: CASE EVENT DATE: 20140828
